FAERS Safety Report 18158220 (Version 1)
Quarter: 2020Q3

REPORT INFORMATION
  Report Type: Spontaneous
  Country: US (occurrence: US)
  Receive Date: 20200817
  Receipt Date: 20200817
  Transmission Date: 20201103
  Serious: Yes (Other)
  Sender: FDA-Public Use
  Company Number: US-ALLERGAN-2030496US

PATIENT
  Sex: Female

DRUGS (1)
  1. BOTOX COSMETIC [Suspect]
     Active Substance: ONABOTULINUMTOXINA
     Indication: PRODUCT USED FOR UNKNOWN INDICATION
     Dosage: 17 UNITS, SINGLE
     Dates: start: 201906, end: 201906

REACTIONS (4)
  - Neuralgia [Unknown]
  - Weight decreased [Unknown]
  - Toxicity to various agents [Unknown]
  - Illness [Unknown]
